FAERS Safety Report 7514306-0 (Version None)
Quarter: 2011Q2

REPORT INFORMATION
  Report Type: 
  Country: None (occurrence: None)
  Receive Date: 20110601
  Receipt Date: 20091203
  Transmission Date: 20111010
  Serious: No
  Sender: FDA-Public Use
  Company Number: 2009BI041098

PATIENT
  Age: 48 Year
  Sex: Male

DRUGS (1)
  1. TYSABRI [Suspect]
     Indication: MULTIPLE SCLEROSIS
     Route: 042
     Dates: start: 20091120

REACTIONS (7)
  - PRURITUS [None]
  - PENILE BLISTER [None]
  - RASH PRURITIC [None]
  - RASH [None]
  - PAIN [None]
  - PYREXIA [None]
  - CHILLS [None]
